FAERS Safety Report 16121822 (Version 1)
Quarter: 2019Q1

REPORT INFORMATION
  Report Type: Spontaneous
  Country: US (occurrence: US)
  Receive Date: 20190222
  Receipt Date: 20190222
  Transmission Date: 20190418
  Serious: Yes (Hospitalization)
  Sender: FDA-Public Use
  Company Number: None

PATIENT
  Age: 58 Year
  Sex: Female

DRUGS (3)
  1. GABAPENTIN. [Concomitant]
     Active Substance: GABAPENTIN
  2. ALECENSA [Suspect]
     Active Substance: ALECTINIB HYDROCHLORIDE
     Indication: LUNG NEOPLASM MALIGNANT
     Route: 048
     Dates: start: 20190201
  3. FENTANYL. [Concomitant]
     Active Substance: FENTANYL

REACTIONS (4)
  - Constipation [None]
  - Red blood cell count decreased [None]
  - White blood cell count decreased [None]
  - Escherichia infection [None]

NARRATIVE: CASE EVENT DATE: 20190218
